FAERS Safety Report 18947104 (Version 2)
Quarter: 2021Q1

REPORT INFORMATION
  Report Type: Report from Study
  Country: None (occurrence: DE)
  Receive Date: 20210227
  Receipt Date: 20210302
  Transmission Date: 20210420
  Serious: Yes (Hospitalization, Other)
  Sender: FDA-Public Use
  Company Number: DE-ABBVIE-21K-062-3790790-00

PATIENT
  Age: 50 Year
  Sex: Male
  Weight: 108 kg

DRUGS (6)
  1. KALINOR [Concomitant]
     Indication: PRODUCT USED FOR UNKNOWN INDICATION
  2. HUMIRA [Suspect]
     Active Substance: ADALIMUMAB
     Indication: PSORIASIS
     Route: 058
     Dates: start: 20080101
  3. MAGNESIUM [Concomitant]
     Active Substance: MAGNESIUM
     Indication: PRODUCT USED FOR UNKNOWN INDICATION
  4. FENOFIBRATE. [Suspect]
     Active Substance: FENOFIBRATE
     Indication: LIPIDS ABNORMAL
     Route: 065
  5. TRAMADOL. [Concomitant]
     Active Substance: TRAMADOL
     Indication: PRODUCT USED FOR UNKNOWN INDICATION
     Dosage: AS REQUIRED
  6. LIXIANA [Concomitant]
     Active Substance: EDOXABAN TOSYLATE
     Indication: ANTICOAGULANT THERAPY
     Dates: start: 2017

REACTIONS (10)
  - Pancreatic necrosis [Not Recovered/Not Resolved]
  - Gastric disorder [Not Recovered/Not Resolved]
  - Pancreatectomy [Not Recovered/Not Resolved]
  - Splenectomy [Not Recovered/Not Resolved]
  - Pancreatitis chronic [Not Recovered/Not Resolved]
  - Hypertension [Unknown]
  - Pancreatic carcinoma [Recovered/Resolved]
  - Fat tissue increased [Not Recovered/Not Resolved]
  - Splenic necrosis [Not Recovered/Not Resolved]
  - Cardiac pacemaker insertion [Not Recovered/Not Resolved]

NARRATIVE: CASE EVENT DATE: 2009
